FAERS Safety Report 11073306 (Version 2)
Quarter: 2015Q3

REPORT INFORMATION
  Report Type: Spontaneous
  Country: US (occurrence: US)
  Receive Date: 20150428
  Receipt Date: 20150704
  Transmission Date: 20151125
  Serious: Yes (Congenital Anomaly, Other)
  Sender: FDA-Public Use
  Company Number: US-APOTEX-2015AP007880

PATIENT
  Age: 0 Day
  Sex: Female
  Weight: 2 kg

DRUGS (1)
  1. PAXIL CR [Suspect]
     Active Substance: PAROXETINE HYDROCHLORIDE
     Indication: ANXIETY
     Dosage: 12.5 MG, UNK
     Route: 064
     Dates: start: 2004, end: 20050517

REACTIONS (10)
  - Patent ductus arteriosus [Unknown]
  - Cardiac murmur [Unknown]
  - Atrial septal defect [Unknown]
  - Apnoea neonatal [Unknown]
  - Right ventricle outflow tract obstruction [Unknown]
  - Sepsis neonatal [Unknown]
  - Hyperbilirubinaemia [Unknown]
  - Neonatal respiratory distress syndrome [Unknown]
  - Premature baby [Unknown]
  - Foetal exposure during pregnancy [Unknown]

NARRATIVE: CASE EVENT DATE: 20050628
